FAERS Safety Report 9714811 (Version 1)
Quarter: 2013Q4

REPORT INFORMATION
  Report Type: Spontaneous
  Country: IT (occurrence: None)
  Receive Date: 20131125
  Receipt Date: 20131125
  Transmission Date: 20140711
  Serious: Yes (Other)
  Sender: FDA-Public Use
  Company Number: 2013P1021142

PATIENT
  Age: 72 Year
  Sex: Male

DRUGS (1)
  1. VALPROATE SODIUM [Suspect]
     Dosage: 60 GM; X1; PO
     Route: 048

REACTIONS (15)
  - Arrhythmia [None]
  - Overdose [None]
  - Miosis [None]
  - Dehydration [None]
  - Hyporeflexia [None]
  - Hyperammonaemia [None]
  - Hypokalaemia [None]
  - Electrocardiogram QT prolonged [None]
  - Altered state of consciousness [None]
  - Ventricular tachycardia [None]
  - Drug ineffective [None]
  - Nodal rhythm [None]
  - Haemodynamic instability [None]
  - Thrombocytopenia [None]
  - Toxicity to various agents [None]
